FAERS Safety Report 8126033-X (Version None)
Quarter: 2012Q1

REPORT INFORMATION
  Report Type: 
  Country: None (occurrence: None)
  Receive Date: 20120209
  Receipt Date: 20120208
  Transmission Date: 20120608
  Serious: Yes (Other)
  Sender: FDA-Public Use
  Company Number: US-ROCHE-788050

PATIENT
  Sex: Male
  Weight: 81.72 kg

DRUGS (1)
  1. ACCUTANE [Suspect]
     Indication: ACNE
     Route: 065

REACTIONS (8)
  - COLITIS ULCERATIVE [None]
  - BLOOD TRIGLYCERIDES INCREASED [None]
  - IRRITABLE BOWEL SYNDROME [None]
  - CROHN'S DISEASE [None]
  - DEPRESSION [None]
  - INFLAMMATORY BOWEL DISEASE [None]
  - INJURY [None]
  - INTESTINAL HAEMORRHAGE [None]
